FAERS Safety Report 13232357 (Version 1)
Quarter: 2017Q1

REPORT INFORMATION
  Report Type: Spontaneous
  Country: GB (occurrence: GB)
  Receive Date: 20170214
  Receipt Date: 20170214
  Transmission Date: 20170428
  Serious: Yes (Other)
  Sender: FDA-Public Use
  Company Number: GB-JNJFOC-20170201226

PATIENT
  Age: 22 Year
  Sex: Female
  Weight: 65 kg

DRUGS (2)
  1. COCODAMOL [Suspect]
     Active Substance: ACETAMINOPHEN\CODEINE PHOSPHATE
     Indication: MIGRAINE
     Dosage: ONE TO TWO TABLETS
     Route: 065
     Dates: start: 20151125, end: 20151126
  2. LEVOTHYROXINE SODIUM. [Concomitant]
     Active Substance: LEVOTHYROXINE SODIUM
     Indication: PRODUCT USED FOR UNKNOWN INDICATION
     Route: 065

REACTIONS (2)
  - Disorientation [Recovered/Resolved]
  - Vertigo [Recovered/Resolved]

NARRATIVE: CASE EVENT DATE: 20151125
